FAERS Safety Report 5715254-9 (Version None)
Quarter: 2008Q2

REPORT INFORMATION
  Report Type: 
  Country: None (occurrence: None)
  Receive Date: 20080423
  Receipt Date: 20080408
  Transmission Date: 20081010
  Serious: Yes (Other)
  Sender: FDA-Public Use
  Company Number: CA-PFIZER INC-2008018918

PATIENT
  Sex: Male
  Weight: 81.6 kg

DRUGS (2)
  1. CHAMPIX [Suspect]
     Indication: SMOKING CESSATION THERAPY
     Route: 048
     Dates: start: 20080206, end: 20080221
  2. ALCOHOL [Interacting]

REACTIONS (4)
  - AGGRESSION [None]
  - DRUG INTERACTION [None]
  - FEELING ABNORMAL [None]
  - HEADACHE [None]
